FAERS Safety Report 8844294 (Version 1)
Quarter: 2012Q4

REPORT INFORMATION
  Report Type: 
  Country: US (occurrence: US)
  Receive Date: 20121017
  Receipt Date: 20121017
  Transmission Date: 20130627
  Serious: Yes (Hospitalization)
  Sender: FDA-Public Use
  Company Number: US-SANOFI-AVENTIS-2012SA073765

PATIENT
  Sex: Female

DRUGS (3)
  1. LANTUS [Suspect]
     Indication: DIABETES
     Route: 058
  2. LOVASTATIN [Suspect]
     Route: 065
  3. LISINOPRIL [Concomitant]
     Route: 065

REACTIONS (5)
  - Dehydration [Unknown]
  - Dry mouth [Unknown]
  - Paraesthesia oral [Unknown]
  - Lip pain [Unknown]
  - Lip discolouration [Unknown]
